FAERS Safety Report 16227611 (Version 1)
Quarter: 2019Q2

REPORT INFORMATION
  Report Type: Spontaneous
  Country: US (occurrence: US)
  Receive Date: 20190423
  Receipt Date: 20190423
  Transmission Date: 20190711
  Serious: No
  Sender: FDA-Public Use
  Company Number: US-009507513-1904USA008035

PATIENT
  Age: 79 Year
  Sex: Male

DRUGS (2)
  1. VORICONAZOLE. [Concomitant]
     Active Substance: VORICONAZOLE
     Indication: EVIDENCE BASED TREATMENT
     Route: 042
  2. CANCIDAS [Suspect]
     Active Substance: CASPOFUNGIN ACETATE
     Indication: ASPERGILLUS INFECTION
     Dosage: UNK
     Route: 042

REACTIONS (1)
  - Product use issue [Unknown]
